FAERS Safety Report 4893618-3 (Version None)
Quarter: 2005Q4

REPORT INFORMATION
  Report Type: 
  Country: None (occurrence: None)
  Receive Date: 20051223
  Receipt Date: 20051006
  Transmission Date: 20060501
  Serious: No
  Sender: FDA-Public Use
  Company Number: 2005PV003026

PATIENT
  Age: 56 Year
  Sex: Female
  Weight: 126.1 kg

DRUGS (4)
  1. SYMLIN [Suspect]
     Indication: DIABETES MELLITUS
     Dosage: 30 MCG;QD;SC ; 60 MCG;QD;SC
     Route: 058
     Dates: start: 20050701, end: 20050920
  2. SYMLIN [Suspect]
     Indication: DIABETES MELLITUS
     Dosage: 30 MCG;QD;SC ; 60 MCG;QD;SC
     Route: 058
     Dates: start: 20050921
  3. HUMULIN 70/30 [Concomitant]
  4. HUMULIN R [Concomitant]

REACTIONS (3)
  - ANOREXIA [None]
  - EARLY SATIETY [None]
  - WEIGHT DECREASED [None]
